FAERS Safety Report 10778611 (Version 1)
Quarter: 2015Q1

REPORT INFORMATION
  Report Type: Spontaneous
  Country: FR (occurrence: FR)
  Receive Date: 20150210
  Receipt Date: 20150210
  Transmission Date: 20150721
  Serious: Yes (Other)
  Sender: FDA-Public Use
  Company Number: FR-ROCHE-1535393

PATIENT
  Age: 21 Year
  Sex: Male

DRUGS (3)
  1. CLOZAPINE. [Suspect]
     Active Substance: CLOZAPINE
     Indication: SCHIZOPHRENIA
     Route: 048
     Dates: start: 20141213, end: 20150108
  2. TERCIAN [Suspect]
     Active Substance: CYAMEMAZINE
     Indication: ANXIETY
     Dosage: ONGOING TREATMENT
     Route: 048
     Dates: start: 20141211
  3. VALIUM [Suspect]
     Active Substance: DIAZEPAM
     Indication: ANXIETY
     Dosage: IF NEEDED; ONGOING TREATMENT
     Route: 048
     Dates: start: 20141211

REACTIONS (2)
  - Myocarditis [Recovering/Resolving]
  - Troponin T increased [Recovered/Resolved]

NARRATIVE: CASE EVENT DATE: 20150108
